FAERS Safety Report 8612920-2 (Version None)
Quarter: 2012Q3

REPORT INFORMATION
  Report Type: 
  Country: None (occurrence: None)
  Receive Date: 20120822
  Receipt Date: 20120807
  Transmission Date: 20120928
  Serious: Yes (Hospitalization, Other)
  Sender: FDA-Public Use
  Company Number: US-009507513-2011SP051275

PATIENT

DRUGS (5)
  1. VITAMINS (UNSPECIFIED) [Concomitant]
     Indication: GENERAL PHYSICAL CONDITION
     Dosage: 1 DF, QD
     Dates: start: 20080901
  2. [COMPOSITION UNSPECIFIED] [Concomitant]
     Indication: CONTRACEPTION
     Dates: start: 20030101
  3. FLONASE [Concomitant]
     Indication: HYPERSENSITIVITY
     Dosage: TAKEN ON A REGULAR BASIS SINCE AGE 13
  4. ASCORBIC ACID [Concomitant]
     Indication: GENERAL PHYSICAL CONDITION
     Dosage: 1 PACKET (1000 MG) DAILY
     Dates: start: 20080901
  5. NUVARING [Suspect]
     Indication: ACNE CYSTIC
     Dates: start: 20080801, end: 20081121

REACTIONS (5)
  - BACK PAIN [None]
  - MUSCLE SPASMS [None]
  - PULMONARY EMBOLISM [None]
  - PELVIC VENOUS THROMBOSIS [None]
  - OFF LABEL USE [None]
